FAERS Safety Report 14590891 (Version 1)
Quarter: 2018Q1

REPORT INFORMATION
  Report Type: Spontaneous
  Country: US (occurrence: US)
  Receive Date: 20180302
  Receipt Date: 20180302
  Transmission Date: 20180509
  Serious: No
  Sender: FDA-Public Use
  Company Number: US-NOVOPROD-578153

PATIENT
  Age: 56 Year
  Sex: Male
  Weight: 82.54 kg

DRUGS (2)
  1. VICTOZA [Suspect]
     Active Substance: LIRAGLUTIDE
     Indication: TYPE 2 DIABETES MELLITUS
     Dosage: 0.6 MG, QD
     Route: 058
     Dates: start: 20171209, end: 20171210
  2. VICTOZA [Suspect]
     Active Substance: LIRAGLUTIDE
     Dosage: 1.2 MG, QD
     Route: 058
     Dates: start: 20171210, end: 20171216

REACTIONS (4)
  - Bladder dilatation [Not Recovered/Not Resolved]
  - Constipation [Recovered/Resolved]
  - Decreased appetite [Recovering/Resolving]
  - Intentional product misuse [Recovered/Resolved]

NARRATIVE: CASE EVENT DATE: 201712
